FAERS Safety Report 4819692-8 (Version None)
Quarter: 2005Q4

REPORT INFORMATION
  Report Type: 
  Country: None (occurrence: None)
  Receive Date: 20051102
  Receipt Date: 20051102
  Transmission Date: 20060501
  Serious: No
  Sender: FDA-Public Use
  Company Number: None

PATIENT
  Sex: Male
  Weight: 98.2 kg

DRUGS (6)
  1. TEQUIN [Suspect]
     Indication: PNEUMONIA
     Dosage: 200 MG QDAY PO
     Route: 048
     Dates: start: 20050814, end: 20050815
  2. TEQUIN [Suspect]
     Indication: URINARY TRACT INFECTION
     Dosage: 200 MG QDAY PO
     Route: 048
     Dates: start: 20050814, end: 20050815
  3. BACLOFEN [Concomitant]
  4. ACETAMINOPHEN [Concomitant]
  5. CLONAZEPAM [Concomitant]
  6. DIAZEPAM [Concomitant]

REACTIONS (2)
  - AGITATION [None]
  - MENTAL STATUS CHANGES [None]
